FAERS Safety Report 21089154 (Version 1)
Quarter: 2022Q3

REPORT INFORMATION
  Report Type: Spontaneous
  Country: US (occurrence: None)
  Receive Date: 20220715
  Receipt Date: 20220715
  Transmission Date: 20221026
  Serious: Yes (Other)
  Sender: FDA-Public Use
  Company Number: None

PATIENT
  Age: 62 Year
  Sex: Female
  Weight: 51.75 kg

DRUGS (1)
  1. ASCLERA [Suspect]
     Active Substance: POLIDOCANOL
     Indication: Varicose vein
     Dates: start: 20210701, end: 20210824

REACTIONS (6)
  - Pain [None]
  - Migraine [None]
  - Visual impairment [None]
  - Hypoaesthesia [None]
  - Product administered at inappropriate site [None]
  - Toxicity to various agents [None]

NARRATIVE: CASE EVENT DATE: 20210824
